FAERS Safety Report 13393946 (Version 2)
Quarter: 2017Q2

REPORT INFORMATION
  Report Type: Spontaneous
  Country: FR (occurrence: FR)
  Receive Date: 20170331
  Receipt Date: 20170613
  Transmission Date: 20170830
  Serious: Yes (Hospitalization)
  Sender: FDA-Public Use
  Company Number: FR-ABBVIE-17P-056-1923083-00

PATIENT
  Age: 65 Year
  Sex: Female
  Weight: 60 kg

DRUGS (20)
  1. NORVIR [Suspect]
     Active Substance: RITONAVIR
     Indication: HIV INFECTION
     Route: 048
     Dates: start: 20160527
  2. SPAFON [Concomitant]
     Indication: PRODUCT USED FOR UNKNOWN INDICATION
     Route: 048
  3. TRUVADA [Suspect]
     Active Substance: EMTRICITABINE\TENOFOVIR DISOPROXIL FUMARATE
     Indication: HIV INFECTION
     Dosage: 200/245MG
     Route: 048
     Dates: start: 20160527, end: 20170123
  4. PREZISTA [Suspect]
     Active Substance: DARUNAVIR ETHANOLATE
     Indication: HIV INFECTION
     Route: 048
     Dates: start: 20170123
  5. VENLAFAXINE [Concomitant]
     Active Substance: VENLAFAXINE HYDROCHLORIDE
     Indication: PRODUCT USED FOR UNKNOWN INDICATION
     Route: 048
  6. ACUPAN [Concomitant]
     Active Substance: NEFOPAM HYDROCHLORIDE
     Indication: PRODUCT USED FOR UNKNOWN INDICATION
     Dosage: 1 AMPOULE X 6 TIMES A DAY IF NEED BE
     Route: 048
  7. PROPANOLOL [Concomitant]
     Active Substance: PROPRANOLOL HYDROCHLORIDE
     Indication: PRODUCT USED FOR UNKNOWN INDICATION
     Route: 048
  8. BACTRIM [Concomitant]
     Active Substance: SULFAMETHOXAZOLE\TRIMETHOPRIM
     Indication: PRODUCT USED FOR UNKNOWN INDICATION
     Dosage: 400/80MG
     Route: 048
     Dates: end: 20170123
  9. ZIAGEN [Concomitant]
     Active Substance: ABACAVIR SULFATE
     Indication: PRODUCT USED FOR UNKNOWN INDICATION
     Dates: end: 20170123
  10. STILNOX [Concomitant]
     Active Substance: ZOLPIDEM TARTRATE
     Indication: PRODUCT USED FOR UNKNOWN INDICATION
     Route: 048
  11. INEXIUM [Concomitant]
     Active Substance: ESOMEPRAZOLE
     Indication: PRODUCT USED FOR UNKNOWN INDICATION
     Route: 048
  12. VALACICLOVIR [Concomitant]
     Active Substance: VALACYCLOVIR HYDROCHLORIDE
     Indication: PRODUCT USED FOR UNKNOWN INDICATION
     Route: 048
  13. UVEDOSE [Concomitant]
     Active Substance: CHOLECALCIFEROL
     Indication: PRODUCT USED FOR UNKNOWN INDICATION
     Route: 048
     Dates: start: 20170125, end: 20170125
  14. UVEDOSE [Concomitant]
     Active Substance: CHOLECALCIFEROL
     Route: 048
     Dates: start: 20170208, end: 20170208
  15. PARACETAMOL [Concomitant]
     Active Substance: ACETAMINOPHEN
     Indication: PRODUCT USED FOR UNKNOWN INDICATION
     Route: 048
  16. SKENAN [Concomitant]
     Active Substance: MORPHINE SULFATE
     Indication: PRODUCT USED FOR UNKNOWN INDICATION
     Dosage: 20 MG
     Route: 048
  17. FORSTEO [Concomitant]
     Active Substance: TERIPARATIDE
     Indication: PRODUCT USED FOR UNKNOWN INDICATION
     Route: 058
  18. MORPHINE [Concomitant]
     Active Substance: MORPHINE
     Indication: PRODUCT USED FOR UNKNOWN INDICATION
  19. ACTISKENAN [Concomitant]
     Active Substance: MORPHINE SULFATE
     Indication: PRODUCT USED FOR UNKNOWN INDICATION
     Route: 048
  20. LEXOMIL [Concomitant]
     Active Substance: BROMAZEPAM
     Indication: PRODUCT USED FOR UNKNOWN INDICATION
     Dosage: 0.5 TABLET
     Route: 048

REACTIONS (6)
  - Chondrocalcinosis [Unknown]
  - Spinal compression fracture [Recovered/Resolved with Sequelae]
  - Intervertebral disc compression [Unknown]
  - Bone pain [Recovered/Resolved]
  - Osteoporosis [Recovered/Resolved with Sequelae]
  - Fanconi syndrome [Recovered/Resolved with Sequelae]

NARRATIVE: CASE EVENT DATE: 201605
